FAERS Safety Report 16062811 (Version 1)
Quarter: 2019Q1

REPORT INFORMATION
  Report Type: Spontaneous
  Country: JP (occurrence: JP)
  Receive Date: 20190312
  Receipt Date: 20190312
  Transmission Date: 20190418
  Serious: Yes (Death, Hospitalization, Other)
  Sender: FDA-Public Use
  Company Number: JP-SILVERGATE PHARMACEUTICALS, INC.-2019SIL00011

PATIENT
  Age: 76 Year
  Sex: Female

DRUGS (5)
  1. CELECOXIB. [Concomitant]
     Active Substance: CELECOXIB
     Route: 065
  2. PREDNISOLONE. [Suspect]
     Active Substance: PREDNISOLONE
     Indication: RHEUMATOID ARTHRITIS
     Dosage: 5 MG, 1X/DAY
     Route: 065
  3. WARFARIN [Concomitant]
     Active Substance: WARFARIN
     Route: 065
  4. PREDNISOLONE. [Suspect]
     Active Substance: PREDNISOLONE
     Dosage: 30 MG
     Route: 065
  5. METHOTREXATE. [Suspect]
     Active Substance: METHOTREXATE
     Indication: RHEUMATOID ARTHRITIS
     Route: 065

REACTIONS (7)
  - Shock [Recovering/Resolving]
  - Disseminated cryptococcosis [Unknown]
  - Renal failure [Fatal]
  - Immunodeficiency [Unknown]
  - Megacolon [Recovering/Resolving]
  - Acidosis [Unknown]
  - Clostridium difficile infection [Unknown]
